FAERS Safety Report 6648461-1 (Version None)
Quarter: 2010Q1

REPORT INFORMATION
  Report Type: 
  Country: None (occurrence: None)
  Receive Date: 20100319
  Receipt Date: 20100221
  Transmission Date: 20100710
  Serious: Yes (Life-Threatening, Hospitalization, Disabling, Other)
  Sender: FDA-Public Use
  Company Number: 2010-00113

PATIENT
  Age: 56 Year
  Sex: Female
  Weight: 78.0187 kg

DRUGS (11)
  1. MELOXICAM [Suspect]
     Indication: BACK PAIN
     Dosage: 15MG (15MG, 1 IN24 HR), PER ORAL
     Route: 048
     Dates: start: 20080101, end: 20100127
  2. MELOXICAM [Suspect]
     Indication: INFLAMMATION
     Dosage: 15MG (15MG, 1 IN24 HR), PER ORAL
     Route: 048
     Dates: start: 20080101, end: 20100127
  3. LIPITOR TAB 40 MG(TABLETS) [Concomitant]
  4. PREVACID CAPSULES 30MG (CAPSULES) [Concomitant]
  5. LEVOTHYROXINE SODIUM [Concomitant]
  6. CARDIZEM CAPSULES 180 MG (CAPSULES) [Concomitant]
  7. PROPAFENONE TAB 150 MG TABLETS [Concomitant]
  8. PROMETHAZINE TAB 25 MG (TABLETS) [Concomitant]
  9. NITRO-STAT SUBLINGUAL TAB 0.4 MG (TABLETS) [Concomitant]
  10. OXYCODONE HCL [Concomitant]
  11. CLONAZEPAM TAB 1MG (TABLETS) [Concomitant]

REACTIONS (3)
  - GASTROINTESTINAL MOTILITY DISORDER [None]
  - LARGE INTESTINE PERFORATION [None]
  - PNEUMONIA [None]
